FAERS Safety Report 8168820-8 (Version None)
Quarter: 2012Q1

REPORT INFORMATION
  Report Type: 
  Country: None (occurrence: None)
  Receive Date: 20120227
  Receipt Date: 20120217
  Transmission Date: 20120608
  Serious: Yes (Other)
  Sender: FDA-Public Use
  Company Number: US-JNJFOC-2009014175

PATIENT
  Sex: Female
  Weight: 78.5 kg

DRUGS (10)
  1. EXTRA STRENGTH TYLENOL [Suspect]
     Indication: SNEEZING
     Route: 048
     Dates: start: 20090514, end: 20090514
  2. WARFARIN SODIUM [Concomitant]
     Indication: BLOOD PRESSURE
     Dosage: DAILY DOSE TEXT: UNSPECIFIED
     Route: 065
     Dates: end: 20090101
  3. EXTRA STRENGTH TYLENOL [Suspect]
     Indication: PYREXIA
     Route: 048
     Dates: start: 20090514, end: 20090514
  4. EXTRA STRENGTH TYLENOL [Suspect]
     Dosage: DAILY DOSE TEXT: 12 THROUGHOUT A DAY
     Route: 048
     Dates: start: 20090513, end: 20090513
  5. ZYRTEC [Suspect]
     Route: 048
  6. EXTRA STRENGTH TYLENOL [Suspect]
     Indication: NASOPHARYNGITIS
     Dosage: DAILY DOSE TEXT: 12 THROUGHOUT A DAY
     Route: 048
     Dates: start: 20090513, end: 20090513
  7. EXTRA STRENGTH TYLENOL [Suspect]
     Dosage: DAILY DOSE TEXT: 12 THROUGHOUT A DAY
     Route: 048
     Dates: start: 20090513, end: 20090513
  8. EXTRA STRENGTH TYLENOL [Suspect]
     Route: 048
     Dates: start: 20090514, end: 20090514
  9. ZYRTEC [Suspect]
     Indication: HYPERSENSITIVITY
     Dosage: DAILY DOSE TEXT: 1 TABLET DAILY
     Route: 048
     Dates: start: 20070401
  10. ALLERGY MEDICATION [Concomitant]
     Indication: PRODUCT USED FOR UNKNOWN INDICATION
     Dosage: DAILY DOSE TEXT: UNSPECIFIED
     Route: 065

REACTIONS (4)
  - OVERDOSE [None]
  - PYREXIA [None]
  - INFECTION [None]
  - INSOMNIA [None]
